FAERS Safety Report 10057741 (Version 1)
Quarter: 2014Q2

REPORT INFORMATION
  Report Type: Spontaneous
  Country: US (occurrence: US)
  Receive Date: 20140404
  Receipt Date: 20140404
  Transmission Date: 20141212
  Serious: No
  Sender: FDA-Public Use
  Company Number: US-BIOGENIDEC-2014BI027994

PATIENT
  Age: 43 Year
  Sex: Female
  Weight: 69 kg

DRUGS (5)
  1. TECFIDERA [Suspect]
     Indication: MULTIPLE SCLEROSIS
     Dates: start: 20130604, end: 201402
  2. TECFIDERA [Suspect]
     Indication: MULTIPLE SCLEROSIS
     Route: 048
     Dates: start: 20130301, end: 20130312
  3. TECFIDERA [Suspect]
     Indication: MULTIPLE SCLEROSIS
     Route: 048
     Dates: start: 20131212, end: 20131219
  4. TECFIDERA [Suspect]
     Indication: MULTIPLE SCLEROSIS
  5. FLUTICASONE [Concomitant]
     Route: 045
     Dates: start: 20130415

REACTIONS (13)
  - Altered visual depth perception [Unknown]
  - Diplopia [Unknown]
  - Visual impairment [Unknown]
  - Blepharospasm [Unknown]
  - Tooth disorder [Unknown]
  - Stress urinary incontinence [Unknown]
  - Fatigue [Unknown]
  - Tremor [Unknown]
  - Prescribed underdose [Unknown]
  - Incontinence [Unknown]
  - Depression [Unknown]
  - Pain in extremity [Unknown]
  - Gastrointestinal disorder [Unknown]
